FAERS Safety Report 16766162 (Version 2)
Quarter: 2019Q3

REPORT INFORMATION
  Report Type: Report from Study
  Country: RU (occurrence: RU)
  Receive Date: 20190903
  Receipt Date: 20190918
  Transmission Date: 20191005
  Serious: Yes (Hospitalization)
  Sender: FDA-Public Use
  Company Number: PHHO2019RU008564

PATIENT
  Age: 10 Year
  Sex: Male
  Weight: 42.6 kg

DRUGS (4)
  1. EVEROLIMUS. [Suspect]
     Active Substance: EVEROLIMUS
     Indication: TUBEROUS SCLEROSIS COMPLEX
     Dosage: 4 MG, QD
     Route: 048
     Dates: start: 2017
  2. EVEROLIMUS. [Suspect]
     Active Substance: EVEROLIMUS
     Indication: SEIZURE
  3. SABRIL [Concomitant]
     Active Substance: VIGABATRIN
     Indication: EPILEPSY
     Dosage: 500 MG, BID
     Route: 065
     Dates: start: 2017
  4. VALPROIC ACID. [Concomitant]
     Active Substance: VALPROIC ACID
     Indication: EPILEPSY
     Dosage: 260 MG, TID
     Route: 065
     Dates: start: 20170720

REACTIONS (1)
  - Erythema nodosum [Recovered/Resolved with Sequelae]

NARRATIVE: CASE EVENT DATE: 20190720
